FAERS Safety Report 23952220 (Version 1)
Quarter: 2024Q2

REPORT INFORMATION
  Report Type: Spontaneous
  Country: FR (occurrence: FR)
  Receive Date: 20240607
  Receipt Date: 20240607
  Transmission Date: 20240716
  Serious: Yes (Death, Hospitalization)
  Sender: FDA-Public Use
  Company Number: FR-ROCHE-3310637

PATIENT
  Age: 45 Year
  Sex: Male
  Weight: 51 kg

DRUGS (19)
  1. CARBOPLATIN [Suspect]
     Active Substance: CARBOPLATIN
     Indication: Non-small cell lung cancer metastatic
     Dosage: 840 MG, EVERY 3 WEEKS
     Route: 042
     Dates: start: 20230214
  2. CARBOPLATIN [Suspect]
     Active Substance: CARBOPLATIN
     Dosage: ON 07MAR2023, RECEIVED MOST RECENT DOSE 900 MG OF CARBOPLATIN PRIOR TO AE AND (SAE)
     Route: 042
     Dates: start: 20230307
  3. PEMETREXED [Suspect]
     Active Substance: PEMETREXED
     Indication: Non-small cell lung cancer metastatic
     Dosage: 850 MG
     Route: 042
     Dates: start: 20230214
  4. PEMETREXED [Suspect]
     Active Substance: PEMETREXED
     Dosage: ON 07MAR2023, RECEIVED MOST RECENT DOSE 800 MG OF PEMETREXED PRIOR TO AE AND (SAE)
     Route: 042
     Dates: start: 20230307
  5. PRIMPERAN [Concomitant]
     Active Substance: METOCLOPRAMIDE HYDROCHLORIDE
     Indication: Nausea
     Dosage: UNK
     Dates: start: 20230214, end: 202303
  6. FOLIC ACID [Concomitant]
     Active Substance: FOLIC ACID
     Dosage: UNK
     Dates: start: 20230208
  7. EMEND [Concomitant]
     Active Substance: APREPITANT
     Indication: Prophylaxis of nausea and vomiting
     Dosage: UNK
     Dates: start: 20230214
  8. EMEND [Concomitant]
     Active Substance: APREPITANT
     Indication: Prophylaxis of nausea and vomiting
  9. PEMBROLIZUMAB [Concomitant]
     Active Substance: PEMBROLIZUMAB
     Indication: Non-small cell lung cancer metastatic
     Dosage: UNK
     Dates: start: 20230214
  10. PEMBROLIZUMAB [Concomitant]
     Active Substance: PEMBROLIZUMAB
     Dosage: RECEIVED MOST RECENT DOSE OF PEMBROLIZUMAB PRIOR TO AE AND (SAE)TOTAL VOLUME PRIOR AE AND SAE
     Dates: start: 20230307
  11. PEGFILGRASTIM [Concomitant]
     Active Substance: PEGFILGRASTIM
     Dosage: UNK
     Dates: start: 20230215
  12. TRAMADOL [Concomitant]
     Active Substance: TRAMADOL\TRAMADOL HYDROCHLORIDE
     Indication: Cancer pain
     Dosage: UNK
     Dates: start: 202301
  13. SODIUM BICARBONATE [Concomitant]
     Active Substance: SODIUM BICARBONATE
     Indication: Mouth ulceration
     Dosage: 1.4 %
     Dates: start: 20230315
  14. ATEZOLIZUMAB [Concomitant]
     Active Substance: ATEZOLIZUMAB
     Indication: Non-small cell lung cancer metastatic
     Dosage: UNK
     Dates: start: 20230214
  15. ATEZOLIZUMAB [Concomitant]
     Active Substance: ATEZOLIZUMAB
     Dosage: RECEIVED MOST RECENT DOSE OF ATEZOLIZUMAB PRIOR TO AE AND (SAE)TOTAL VOLUME PRIOR AE AND SAE
     Dates: start: 20230307
  16. PREDNISOLONE SODIUM METAZOATE [Concomitant]
     Active Substance: PREDNISOLONE SODIUM METAZOATE
     Dosage: 40 MG, 1X/DAY
     Dates: start: 20230213
  17. TIRAGOLUMAB [Concomitant]
     Active Substance: TIRAGOLUMAB
     Indication: Non-small cell lung cancer metastatic
     Dosage: UNK
     Dates: start: 20230214
  18. TIRAGOLUMAB [Concomitant]
     Active Substance: TIRAGOLUMAB
     Dosage: RECEIVED MOST RECENT DOSE OF TIRAGOLUMAB PRIOR TO AE (ADVERSE EVENT) AND SERIOUS AE (SAE)
     Dates: start: 20230307
  19. ZOPICLONE [Concomitant]
     Active Substance: ZOPICLONE
     Indication: Insomnia
     Dosage: UNK
     Dates: start: 202301

REACTIONS (5)
  - Pneumoperitoneum [Fatal]
  - Perforation [Fatal]
  - Fistula of small intestine [Fatal]
  - Tumour necrosis [Fatal]
  - Off label use [Unknown]

NARRATIVE: CASE EVENT DATE: 20230313
